FAERS Safety Report 23455883 (Version 1)
Quarter: 2024Q1

REPORT INFORMATION
  Report Type: Spontaneous
  Country: US (occurrence: US)
  Receive Date: 20240130
  Receipt Date: 20240130
  Transmission Date: 20240409
  Serious: No
  Sender: FDA-Public Use
  Company Number: US-PADAGIS-2024PAD00045

PATIENT

DRUGS (1)
  1. AMMONIUM LACTATE [Suspect]
     Active Substance: AMMONIUM LACTATE
     Indication: Dry skin
     Dosage: UNK
     Route: 065
     Dates: start: 20240109

REACTIONS (2)
  - Perfume sensitivity [Unknown]
  - Application site pain [Unknown]

NARRATIVE: CASE EVENT DATE: 20240109
